FAERS Safety Report 5651065-0 (Version None)
Quarter: 2008Q1

REPORT INFORMATION
  Report Type: 
  Country: None (occurrence: None)
  Receive Date: 20080305
  Receipt Date: 20080303
  Transmission Date: 20080703
  Serious: Yes (Other)
  Sender: FDA-Public Use
  Company Number: B0507494A

PATIENT
  Age: 40 Year
  Sex: Female
  Weight: 54 kg

DRUGS (3)
  1. RELENZA [Suspect]
     Indication: INFLUENZA
     Dosage: 10MG TWICE PER DAY
     Route: 055
     Dates: start: 20080206
  2. CALONAL [Suspect]
     Indication: HEADACHE
     Route: 048
     Dates: start: 20080206
  3. ISALON [Suspect]
     Indication: GASTRITIS
     Route: 048
     Dates: start: 20080206

REACTIONS (6)
  - ANAEMIA [None]
  - HEADACHE [None]
  - LOSS OF CONSCIOUSNESS [None]
  - NAUSEA [None]
  - NECK PAIN [None]
  - VOMITING [None]
